FAERS Safety Report 25123525 (Version 1)
Quarter: 2025Q1

REPORT INFORMATION
  Report Type: Other
  Country: US (occurrence: US)
  Receive Date: 20250326
  Receipt Date: 20250326
  Transmission Date: 20250409
  Serious: No
  Sender: B BRAUN
  Company Number: US-B.Braun Medical Inc.-2173697

PATIENT
  Age: 23 Year
  Sex: Female
  Weight: 102.27 kg

DRUGS (1)
  1. BUPIVACAINE HYDROCHLORIDE [Suspect]
     Active Substance: BUPIVACAINE HYDROCHLORIDE

REACTIONS (2)
  - Drug ineffective [Unknown]
  - Anaesthetic complication [Unknown]
